FAERS Safety Report 17419877 (Version 1)
Quarter: 2020Q1

REPORT INFORMATION
  Report Type: Spontaneous
  Country: CH (occurrence: CH)
  Receive Date: 20200214
  Receipt Date: 20200214
  Transmission Date: 20200409
  Serious: Yes (Other)
  Sender: FDA-Public Use
  Company Number: CH-ROCHE-2545686

PATIENT

DRUGS (1)
  1. MABTHERA [Suspect]
     Active Substance: RITUXIMAB
     Indication: HAEMOLYTIC ANAEMIA
     Dosage: 4 DOSES
     Route: 042

REACTIONS (3)
  - Haemolytic anaemia [Unknown]
  - Off label use [Unknown]
  - Intentional product use issue [Unknown]
